FAERS Safety Report 5764673-3 (Version None)
Quarter: 2008Q2

REPORT INFORMATION
  Report Type: 
  Country: None (occurrence: None)
  Receive Date: 20080611
  Receipt Date: 20080527
  Transmission Date: 20081010
  Serious: Yes (Other)
  Sender: FDA-Public Use
  Company Number: PHBS2007AU20651

PATIENT
  Age: 79 Year
  Sex: Male

DRUGS (1)
  1. PIMECROLIMUS [Suspect]
     Indication: BALANITIS
     Route: 061

REACTIONS (3)
  - CIRCUMCISION [None]
  - ERYTHROPLASIA OF PENIS [None]
  - SQUAMOUS CELL CARCINOMA [None]
